FAERS Safety Report 4579754-X (Version None)
Quarter: 2005Q1

REPORT INFORMATION
  Report Type: 
  Country: None (occurrence: None)
  Receive Date: 20050210
  Receipt Date: 20050126
  Transmission Date: 20050727
  Serious: Yes (Death)
  Sender: FDA-Public Use
  Company Number: 2004AL000733

PATIENT
  Age: 84 Year
  Sex: Female

DRUGS (8)
  1. CLONIDINE HCL [Suspect]
     Dosage: PO
     Route: 048
  2. AMLODIPINE/BENAZEPRIL [Suspect]
     Dosage: PO
     Route: 048
  3. GLIMEPIRIDE [Suspect]
     Dosage: PO
     Route: 048
  4. PROMETHAZINE HCL [Suspect]
     Dosage: PO
     Route: 048
  5. DIAZEPAM [Suspect]
     Dosage: PO
     Route: 048
  6. LORAZEPAM [Suspect]
     Dosage: PO
     Route: 048
  7. RISPERIDONE [Suspect]
     Dosage: PO
     Route: 048
  8. ESCITALOPRAM OXALATE [Suspect]
     Dosage: PO
     Route: 048

REACTIONS (7)
  - COMPLETED SUICIDE [None]
  - HAEMODIALYSIS [None]
  - HYPERGLYCAEMIA [None]
  - HYPOTENSION [None]
  - MULTIPLE DRUG OVERDOSE [None]
  - NO THERAPEUTIC RESPONSE [None]
  - RENAL FAILURE [None]
